FAERS Safety Report 7606446-2 (Version None)
Quarter: 2011Q3

REPORT INFORMATION
  Report Type: 
  Country: None (occurrence: None)
  Receive Date: 20110705
  Receipt Date: 20110628
  Transmission Date: 20111222
  Serious: Yes (Life-Threatening, Hospitalization)
  Sender: FDA-Public Use
  Company Number: 2011SP024196

PATIENT
  Age: 42 Year
  Sex: Female
  Weight: 106 kg

DRUGS (7)
  1. MIRTAZAPINE [Suspect]
     Indication: MAJOR DEPRESSION
     Dosage: 900 MG; ONCE
     Dates: start: 20101213, end: 20101213
  2. MIRTAZAPINE [Suspect]
     Indication: MAJOR DEPRESSION
     Dosage: 900 MG; ONCE
     Dates: start: 20101210
  3. TERCIAN [Concomitant]
  4. OXAZEPAM [Concomitant]
  5. MEPRONIZINE (OTHER MFR) (MEPRONIZINE /00789201/) [Suspect]
     Dosage: 50 DF; ONCE; PO
     Route: 048
     Dates: start: 20101213, end: 20101213
  6. MEPRONIZINE (OTHER MFR) (MEPRONIZINE /00789201/) [Suspect]
     Dosage: 50 DF; ONCE; PO
     Route: 048
     Dates: start: 20101210
  7. IMOVANE [Concomitant]

REACTIONS (3)
  - DUST INHALATION PNEUMOPATHY [None]
  - TOXICITY TO VARIOUS AGENTS [None]
  - COMA [None]
